FAERS Safety Report 10255992 (Version 1)
Quarter: 2014Q2

REPORT INFORMATION
  Report Type: Spontaneous
  Country: RU (occurrence: RU)
  Receive Date: 20140624
  Receipt Date: 20140624
  Transmission Date: 20141212
  Serious: Yes (Hospitalization)
  Sender: FDA-Public Use
  Company Number: RU-VIIV HEALTHCARE LIMITED-B1006565A

PATIENT
  Sex: Female

DRUGS (6)
  1. KIVEXA [Suspect]
     Indication: HIV INFECTION
     Route: 065
     Dates: start: 2014
  2. STOCRIN [Suspect]
     Indication: HIV INFECTION
     Route: 065
     Dates: start: 2014
  3. ZIAGEN [Concomitant]
  4. LAMIVUDINE-HIV [Concomitant]
  5. REYATAZ [Concomitant]
  6. RITONAVIR [Concomitant]

REACTIONS (4)
  - Gastroenteritis [Unknown]
  - Photosensitivity reaction [Not Recovered/Not Resolved]
  - Erythema [Recovered/Resolved]
  - Skin burning sensation [Recovered/Resolved]
